FAERS Safety Report 5334339-2 (Version None)
Quarter: 2007Q2

REPORT INFORMATION
  Report Type: 
  Country: None (occurrence: None)
  Receive Date: 20070525
  Receipt Date: 20060901
  Transmission Date: 20071010
  Serious: No
  Sender: FDA-Public Use
  Company Number: US-BRISTOL-MYERS SQUIBB COMPANY-13496567

PATIENT
  Age: 46 Year
  Sex: Female

DRUGS (4)
  1. CYTOXAN [Suspect]
     Indication: BREAST CANCER
     Route: 042
     Dates: start: 20060901, end: 20060901
  2. ADRIAMYCIN PFS [Concomitant]
     Dates: start: 20060901, end: 20060901
  3. ALOXI [Concomitant]
     Indication: PREMEDICATION
     Dates: start: 20060901, end: 20060901
  4. DECADRON [Concomitant]
     Indication: PREMEDICATION
     Dates: start: 20060901, end: 20060901

REACTIONS (1)
  - EXTRAVASATION [None]
